APPROVED DRUG PRODUCT: COLISTIMETHATE SODIUM
Active Ingredient: COLISTIMETHATE SODIUM
Strength: EQ 150MG BASE/VIAL
Dosage Form/Route: INJECTABLE;INJECTION
Application: A205356 | Product #001 | TE Code: AP
Applicant: XELLIA PHARMACEUTICALS APS
Approved: May 29, 2015 | RLD: No | RS: No | Type: RX